FAERS Safety Report 22656603 (Version 1)
Quarter: 2023Q2

REPORT INFORMATION
  Report Type: Report from Study
  Country: US (occurrence: US)
  Receive Date: 20230630
  Receipt Date: 20230630
  Transmission Date: 20230722
  Serious: No
  Sender: FDA-Public Use
  Company Number: US-ACADIA PHARMACEUTICALS INC.-ACA-2023-PIM-002287

PATIENT
  Sex: Male

DRUGS (9)
  1. NUPLAZID [Suspect]
     Active Substance: PIMAVANSERIN TARTRATE
     Indication: Parkinson^s disease
     Dosage: 34 MILLIGRAM, QD
     Route: 048
     Dates: start: 202301
  2. CYCLOBENZAPRINE [Concomitant]
     Active Substance: CYCLOBENZAPRINE
  3. LEVOTHYROXINE [Concomitant]
     Active Substance: LEVOTHYROXINE
  4. DONEPEZIL [Concomitant]
     Active Substance: DONEPEZIL
  5. PANTOPRAZOLE [Concomitant]
     Active Substance: PANTOPRAZOLE
  6. MEMANTINE [Concomitant]
     Active Substance: MEMANTINE
  7. RISPERIDONE [Concomitant]
     Active Substance: RISPERIDONE
  8. AMANTADINE [Concomitant]
     Active Substance: AMANTADINE
  9. MELATONIN [Concomitant]
     Active Substance: MELATONIN

REACTIONS (2)
  - Nonspecific reaction [Not Recovered/Not Resolved]
  - Product dose omission issue [Unknown]
